FAERS Safety Report 4454728-8 (Version None)
Quarter: 2004Q3

REPORT INFORMATION
  Report Type: 
  Country: None (occurrence: None)
  Receive Date: 20040920
  Receipt Date: 20040920
  Transmission Date: 20050211
  Serious: Yes (Hospitalization)
  Sender: FDA-Public Use
  Company Number: None

PATIENT
  Age: 80 Year
  Sex: Male

DRUGS (1)
  1. OLANZAPINE [Suspect]
     Indication: DEMENTIA
     Dosage: 10 MG QHS ORAL
     Route: 048
     Dates: start: 20040825, end: 20040902

REACTIONS (2)
  - ANAPHYLACTIC REACTION [None]
  - RESPIRATORY FAILURE [None]
